FAERS Safety Report 24707890 (Version 1)
Quarter: 2024Q4

REPORT INFORMATION
  Report Type: Report from Study
  Country: IT (occurrence: IT)
  Receive Date: 20241206
  Receipt Date: 20241206
  Transmission Date: 20250115
  Serious: Yes (Hospitalization, Other)
  Sender: INCYTE
  Company Number: IT-002147023-NVSC2024IT160942

PATIENT

DRUGS (8)
  1. RUXOLITINIB [Suspect]
     Active Substance: RUXOLITINIB
     Indication: Myelofibrosis
     Dosage: 30 MG
     Route: 065
     Dates: start: 20201223, end: 20210119
  2. RUXOLITINIB [Suspect]
     Active Substance: RUXOLITINIB
     Dosage: 20 MG
     Route: 065
     Dates: start: 20210120, end: 20210201
  3. RUXOLITINIB [Suspect]
     Active Substance: RUXOLITINIB
     Dosage: 10 MG
     Route: 048
     Dates: start: 20210202, end: 20240709
  4. RUXOLITINIB [Suspect]
     Active Substance: RUXOLITINIB
     Dosage: UNK
     Route: 048
     Dates: start: 20240710, end: 20240728
  5. RUXOLITINIB [Suspect]
     Active Substance: RUXOLITINIB
     Dosage: 10 MG, QD
     Route: 065
     Dates: start: 20240729
  6. COUMADIN [Concomitant]
     Active Substance: WARFARIN SODIUM
     Indication: Aortic valve replacement
     Dosage: 5 MG
     Route: 065
     Dates: start: 1988
  7. ALLOPURINOL [Concomitant]
     Active Substance: ALLOPURINOL
     Indication: Prophylaxis
     Dosage: 100 MG
     Route: 065
     Dates: start: 2020
  8. LEVOTHYROXINE [Concomitant]
     Active Substance: LEVOTHYROXINE
     Indication: Hypothyroidism
     Dosage: 50 MG
     Route: 065
     Dates: start: 202005

REACTIONS (4)
  - Diabetes mellitus [Unknown]
  - Pneumonia legionella [Recovered/Resolved]
  - Leukocytosis [Unknown]
  - Retroperitoneal haematoma [Recovered/Resolved]

NARRATIVE: CASE EVENT DATE: 20240624
